FAERS Safety Report 9865172 (Version 1)
Quarter: 2014Q1

REPORT INFORMATION
  Report Type: Spontaneous
  Country: IT (occurrence: IT)
  Receive Date: 20140203
  Receipt Date: 20140203
  Transmission Date: 20141002
  Serious: Yes (Hospitalization)
  Sender: FDA-Public Use
  Company Number: PHHY2014IT010219

PATIENT
  Age: 59 Year
  Sex: Female

DRUGS (3)
  1. MIRTAZAPINE [Suspect]
     Indication: PARKINSON^S DISEASE
  2. VALIUM [Interacting]
     Dosage: 5 DRP, ONCE/SINGLE
     Route: 048
     Dates: start: 20120912, end: 20120912
  3. TAVOR (LORAZEPAM) [Concomitant]
     Indication: PARKINSON^S DISEASE

REACTIONS (4)
  - Tremor [Recovering/Resolving]
  - Slow response to stimuli [Recovering/Resolving]
  - Drug interaction [Recovering/Resolving]
  - Medication error [Recovering/Resolving]
